FAERS Safety Report 5300980-6 (Version None)
Quarter: 2007Q1

REPORT INFORMATION
  Report Type: 
  Country: None (occurrence: None)
  Receive Date: 20070201
  Receipt Date: 20061220
  Transmission Date: 20070707
  Serious: No
  Sender: FDA-Public Use
  Company Number: 2006PV027261

PATIENT
  Age: 51 Year
  Sex: Male
  Weight: 122.4712 kg

DRUGS (3)
  1. BYETTA [Suspect]
     Indication: DIABETES MELLITUS NON-INSULIN-DEPENDENT
     Dosage: 10 MCG;BID;SC
     Route: 058
     Dates: start: 20050101
  2. ACTOS [Concomitant]
  3. GLUCOVANCE [Concomitant]

REACTIONS (3)
  - DECREASED APPETITE [None]
  - LABORATORY TEST ABNORMAL [None]
  - WEIGHT DECREASED [None]
